FAERS Safety Report 8115168-3 (Version None)
Quarter: 2012Q1

REPORT INFORMATION
  Report Type: 
  Country: None (occurrence: None)
  Receive Date: 20120206
  Receipt Date: 20120131
  Transmission Date: 20120608
  Serious: Yes (Life-Threatening, Other)
  Sender: FDA-Public Use
  Company Number: JP-PFIZER INC-2011304992

PATIENT
  Age: 30 Year
  Sex: Female
  Weight: 45.15 kg

DRUGS (5)
  1. ZITHROMAX [Suspect]
     Indication: PNEUMONIA MYCOPLASMAL
     Dosage: 500 MG, 1X/DAY
     Route: 042
     Dates: start: 20111208, end: 20111210
  2. CEFOTIAM HYDROCHLORIDE [Suspect]
     Indication: PNEUMONIA MYCOPLASMAL
     Dosage: 1 G, 2X/DAY
     Route: 042
     Dates: start: 20111208, end: 20111210
  3. VOLTAREN [Concomitant]
     Indication: PNEUMONIA MYCOPLASMAL
     Dosage: 50 MG, 1X/DAY
     Route: 054
     Dates: start: 20111209, end: 20111209
  4. BISOLVON [Suspect]
     Indication: PNEUMONIA MYCOPLASMAL
     Dosage: 4 MG, 2X/DAY
     Route: 042
     Dates: start: 20111208, end: 20111210
  5. ZITHROMAX [Concomitant]
     Dosage: 500 MG, 1X/DAY
     Route: 048
     Dates: start: 20111207, end: 20111207

REACTIONS (3)
  - SUICIDE ATTEMPT [None]
  - DELUSION [None]
  - CONFUSIONAL STATE [None]
